FAERS Safety Report 18544598 (Version 3)
Quarter: 2021Q1

REPORT INFORMATION
  Report Type: Spontaneous
  Country: JP (occurrence: JP)
  Receive Date: 20201125
  Receipt Date: 20210105
  Transmission Date: 20210419
  Serious: Yes (Death)
  Sender: FDA-Public Use
  Company Number: NVSJ2020JP012361

PATIENT
  Age: 80 Year
  Sex: Female
  Weight: 57.6 kg

DRUGS (11)
  1. LENDORMIN [Concomitant]
     Active Substance: BROTIZOLAM
     Indication: INSOMNIA
     Dosage: 0.25 MG, QD
     Route: 048
     Dates: start: 20061120, end: 20201117
  2. FEBURIC [Concomitant]
     Active Substance: FEBUXOSTAT
     Indication: HYPERURICAEMIA
     Dosage: 10 MG, QD
     Route: 048
     Dates: start: 20200304, end: 20201117
  3. DIART [Concomitant]
     Active Substance: AZOSEMIDE
     Indication: CARDIAC FAILURE
     Dosage: 30 MG, QD
     Route: 048
     Dates: start: 20190808, end: 20200915
  4. ENTRESTO [Suspect]
     Active Substance: SACUBITRIL\VALSARTAN
     Dosage: 100 MG, BID
     Route: 048
     Dates: start: 20201014, end: 20201117
  5. CIBENOL [Concomitant]
     Active Substance: CIFENLINE
     Indication: LEFT VENTRICLE OUTFLOW TRACT OBSTRUCTION
     Dosage: 100 MG, BID
     Route: 048
     Dates: start: 20061120, end: 20201117
  6. ENTRESTO [Suspect]
     Active Substance: SACUBITRIL\VALSARTAN
     Indication: CARDIAC FAILURE CHRONIC
     Dosage: 50 MG, BID
     Route: 048
     Dates: start: 20200902, end: 20201013
  7. MAINTATE [Concomitant]
     Active Substance: BISOPROLOL FUMARATE
     Indication: VENTRICULAR REMODELLING
     Dosage: 0.625 MG, QD
     Route: 048
     Dates: start: 20190614, end: 20201107
  8. PEMAFIBRATE [Concomitant]
     Active Substance: PEMAFIBRATE
     Indication: HYPERTRIGLYCERIDAEMIA
     Dosage: 0.1 MG, BID
     Route: 048
     Dates: start: 20191010, end: 20201117
  9. MICARDIS [Concomitant]
     Active Substance: TELMISARTAN
     Dosage: 20 MG, QD
     Route: 048
     Dates: start: 20200626, end: 20200901
  10. SINGULAIR [Concomitant]
     Active Substance: MONTELUKAST SODIUM
     Indication: COUGH
     Dosage: 10 MG, QD
     Route: 048
     Dates: start: 20190719, end: 20201117
  11. MICARDIS [Concomitant]
     Active Substance: TELMISARTAN
     Indication: HYPERTENSION
     Dosage: 40 MG, QD
     Route: 048
     Dates: start: 20190517, end: 20200625

REACTIONS (7)
  - Sudden death [Fatal]
  - Cardiac failure acute [Fatal]
  - Respiratory arrest [Fatal]
  - Ventricular tachycardia [Fatal]
  - Loss of consciousness [Fatal]
  - Cardio-respiratory arrest [Fatal]
  - Fall [Unknown]

NARRATIVE: CASE EVENT DATE: 20201117
